FAERS Safety Report 4985931-6 (Version None)
Quarter: 2006Q2

REPORT INFORMATION
  Report Type: 
  Country: None (occurrence: None)
  Receive Date: 20060421
  Receipt Date: 20060411
  Transmission Date: 20061013
  Serious: Yes (Hospitalization, Other)
  Sender: FDA-Public Use
  Company Number: 2006028985

PATIENT
  Age: 75 Year
  Sex: Male

DRUGS (4)
  1. CELEBREX [Suspect]
     Indication: PAIN
     Dosage: 400 MG (200 MG, 2 IN 1 D), ORAL
     Route: 048
     Dates: start: 20051001, end: 20060223
  2. LIPITOR [Concomitant]
  3. WARFARIN SODIUM [Concomitant]
  4. SYNTHROID [Concomitant]

REACTIONS (8)
  - BLINDNESS TRANSIENT [None]
  - BLOOD PRESSURE INCREASED [None]
  - CEREBROVASCULAR ACCIDENT [None]
  - DISORIENTATION [None]
  - DIZZINESS [None]
  - DYSPNOEA [None]
  - HEADACHE [None]
  - HEART RATE IRREGULAR [None]
